FAERS Safety Report 18371164 (Version 21)
Quarter: 2022Q4

REPORT INFORMATION
  Report Type: Spontaneous
  Country: CA (occurrence: CA)
  Receive Date: 20201012
  Receipt Date: 20221226
  Transmission Date: 20230112
  Serious: Yes (Life-Threatening, Hospitalization, Other)
  Sender: FDA-Public Use
  Company Number: CA-BAUSCH-BL-2019-025011

PATIENT
  Age: 56 Year
  Sex: Male

DRUGS (357)
  1. NITROGLYCERIN [Suspect]
     Active Substance: NITROGLYCERIN
     Indication: Prinzmetal angina
     Route: 065
  2. NITROGLYCERIN [Suspect]
     Active Substance: NITROGLYCERIN
     Route: 065
  3. NITROGLYCERIN [Suspect]
     Active Substance: NITROGLYCERIN
     Route: 065
  4. NITROGLYCERIN [Suspect]
     Active Substance: NITROGLYCERIN
     Route: 048
  5. NITROGLYCERIN [Suspect]
     Active Substance: NITROGLYCERIN
     Route: 048
  6. NITROGLYCERIN [Suspect]
     Active Substance: NITROGLYCERIN
     Route: 065
  7. NITROGLYCERIN [Suspect]
     Active Substance: NITROGLYCERIN
     Route: 048
  8. CICLOPIROX [Suspect]
     Active Substance: CICLOPIROX
     Indication: Product used for unknown indication
     Route: 065
  9. CICLOPIROX [Suspect]
     Active Substance: CICLOPIROX
     Route: 065
  10. CICLOPIROX [Suspect]
     Active Substance: CICLOPIROX
     Route: 065
  11. CICLOPIROX OLAMINE [Suspect]
     Active Substance: CICLOPIROX OLAMINE
     Indication: Product used for unknown indication
     Route: 065
  12. CICLOPIROX OLAMINE [Suspect]
     Active Substance: CICLOPIROX OLAMINE
     Route: 065
  13. CICLOPIROX OLAMINE [Suspect]
     Active Substance: CICLOPIROX OLAMINE
     Route: 065
  14. DILTIAZEM [Suspect]
     Active Substance: DILTIAZEM
     Indication: Product used for unknown indication
     Route: 065
  15. DILTIAZEM [Suspect]
     Active Substance: DILTIAZEM
     Route: 048
  16. DILTIAZEM [Suspect]
     Active Substance: DILTIAZEM
     Route: 065
  17. DILTIAZEM [Suspect]
     Active Substance: DILTIAZEM
     Route: 065
  18. DILTIAZEM HYDROCHLORIDE [Suspect]
     Active Substance: DILTIAZEM HYDROCHLORIDE
     Indication: Product used for unknown indication
     Route: 048
  19. DILTIAZEM HYDROCHLORIDE [Suspect]
     Active Substance: DILTIAZEM HYDROCHLORIDE
     Route: 065
  20. DILTIAZEM HYDROCHLORIDE [Suspect]
     Active Substance: DILTIAZEM HYDROCHLORIDE
     Route: 048
  21. DILTIAZEM HYDROCHLORIDE [Suspect]
     Active Substance: DILTIAZEM HYDROCHLORIDE
     Route: 065
  22. DILTIAZEM HYDROCHLORIDE [Suspect]
     Active Substance: DILTIAZEM HYDROCHLORIDE
     Route: 048
  23. DILTIAZEM HYDROCHLORIDE [Suspect]
     Active Substance: DILTIAZEM HYDROCHLORIDE
     Route: 065
  24. DILTIAZEM HYDROCHLORIDE [Suspect]
     Active Substance: DILTIAZEM HYDROCHLORIDE
     Route: 065
  25. DILTIAZEM HYDROCHLORIDE [Suspect]
     Active Substance: DILTIAZEM HYDROCHLORIDE
     Route: 048
  26. DILTIAZEM HYDROCHLORIDE [Suspect]
     Active Substance: DILTIAZEM HYDROCHLORIDE
     Route: 065
  27. HYDROCORTISONE [Suspect]
     Active Substance: HYDROCORTISONE
     Indication: Product used for unknown indication
     Dosage: NOT SPECIFIED
     Route: 061
  28. HYDROCORTISONE [Suspect]
     Active Substance: HYDROCORTISONE
     Route: 065
  29. HYDROCORTISONE [Suspect]
     Active Substance: HYDROCORTISONE
     Dosage: NOT SPECIFIED
     Route: 065
  30. HYDROCORTISONE [Suspect]
     Active Substance: HYDROCORTISONE
     Route: 061
  31. HYDROCORTISONE [Suspect]
     Active Substance: HYDROCORTISONE
     Dosage: NOT SPECIFIED
     Route: 061
  32. HYDROCORTISONE [Suspect]
     Active Substance: HYDROCORTISONE
     Route: 065
  33. HYDROCORTISONE [Suspect]
     Active Substance: HYDROCORTISONE
     Route: 061
  34. DELATESTRYL [Suspect]
     Active Substance: TESTOSTERONE ENANTHATE
     Indication: Product used for unknown indication
     Dosage: SOLUTION INTRAMUSCULAR (FILL SIZE: 5 ML)
     Route: 030
  35. DELATESTRYL [Suspect]
     Active Substance: TESTOSTERONE ENANTHATE
     Route: 030
  36. DELATESTRYL [Suspect]
     Active Substance: TESTOSTERONE ENANTHATE
     Route: 030
  37. DELATESTRYL [Suspect]
     Active Substance: TESTOSTERONE ENANTHATE
     Route: 030
  38. DELATESTRYL [Suspect]
     Active Substance: TESTOSTERONE ENANTHATE
     Route: 030
  39. DELATESTRYL [Suspect]
     Active Substance: TESTOSTERONE ENANTHATE
     Route: 030
  40. DELATESTRYL [Suspect]
     Active Substance: TESTOSTERONE ENANTHATE
     Dosage: SOLUTION INTRAMUSCULAR
     Route: 030
  41. DELATESTRYL [Suspect]
     Active Substance: TESTOSTERONE ENANTHATE
     Route: 065
  42. DELATESTRYL [Suspect]
     Active Substance: TESTOSTERONE ENANTHATE
     Route: 030
  43. DELATESTRYL [Suspect]
     Active Substance: TESTOSTERONE ENANTHATE
     Route: 065
  44. DELATESTRYL [Suspect]
     Active Substance: TESTOSTERONE ENANTHATE
     Route: 065
  45. DELATESTRYL [Suspect]
     Active Substance: TESTOSTERONE ENANTHATE
     Route: 065
  46. DELATESTRYL [Suspect]
     Active Substance: TESTOSTERONE ENANTHATE
     Route: 065
  47. DELATESTRYL [Suspect]
     Active Substance: TESTOSTERONE ENANTHATE
     Route: 030
  48. DELATESTRYL [Suspect]
     Active Substance: TESTOSTERONE ENANTHATE
     Route: 030
  49. DELATESTRYL [Suspect]
     Active Substance: TESTOSTERONE ENANTHATE
     Route: 065
  50. RAMIPRIL [Suspect]
     Active Substance: RAMIPRIL
     Indication: Product used for unknown indication
     Route: 065
  51. RAMIPRIL [Suspect]
     Active Substance: RAMIPRIL
     Dosage: NOT SPECIFIED
     Route: 065
  52. RAMIPRIL [Suspect]
     Active Substance: RAMIPRIL
     Route: 065
  53. RAMIPRIL [Suspect]
     Active Substance: RAMIPRIL
     Route: 048
  54. RAMIPRIL [Suspect]
     Active Substance: RAMIPRIL
     Dosage: NOT SPECIFIED
     Route: 065
  55. RAMIPRIL [Suspect]
     Active Substance: RAMIPRIL
     Dosage: NOT SPECIFIED
     Route: 065
  56. RAMIPRIL [Suspect]
     Active Substance: RAMIPRIL
     Route: 048
  57. RAMIPRIL [Suspect]
     Active Substance: RAMIPRIL
     Route: 048
  58. RAMIPRIL [Suspect]
     Active Substance: RAMIPRIL
     Route: 048
  59. RAMIPRIL [Suspect]
     Active Substance: RAMIPRIL
     Route: 065
  60. RAMIPRIL [Suspect]
     Active Substance: RAMIPRIL
     Route: 065
  61. HYDROCORTISONE BUTYRATE [Suspect]
     Active Substance: HYDROCORTISONE BUTYRATE
     Indication: Product used for unknown indication
     Route: 061
  62. HYDROCORTISONE BUTYRATE [Suspect]
     Active Substance: HYDROCORTISONE BUTYRATE
     Route: 065
  63. HYDROCORTISONE BUTYRATE [Suspect]
     Active Substance: HYDROCORTISONE BUTYRATE
     Route: 065
  64. HYDROCORTISONE BUTYRATE [Suspect]
     Active Substance: HYDROCORTISONE BUTYRATE
     Route: 065
  65. HYDROCORTISONE BUTYRATE [Suspect]
     Active Substance: HYDROCORTISONE BUTYRATE
     Route: 065
  66. HYDROCORTISONE BUTYRATE [Suspect]
     Active Substance: HYDROCORTISONE BUTYRATE
     Route: 061
  67. HYDROCORTISONE BUTYRATE [Suspect]
     Active Substance: HYDROCORTISONE BUTYRATE
     Route: 061
  68. NITROGLYCERIN [Suspect]
     Active Substance: NITROGLYCERIN
     Indication: Product used for unknown indication
     Route: 065
  69. NITROGLYCERIN [Suspect]
     Active Substance: NITROGLYCERIN
     Route: 065
  70. TESTOSTERONE ENANTHATE [Suspect]
     Active Substance: TESTOSTERONE ENANTHATE
     Indication: Product used for unknown indication
     Dosage: LIQUID INTRAMUSCULAR
     Route: 030
  71. TESTOSTERONE [Suspect]
     Active Substance: TESTOSTERONE
     Indication: Product used for unknown indication
     Dosage: NOT SPECIFIED
     Route: 065
  72. NITROGLYCERIN [Suspect]
     Active Substance: NITROGLYCERIN
     Indication: Prinzmetal angina
     Route: 048
  73. NITROGLYCERIN [Suspect]
     Active Substance: NITROGLYCERIN
     Route: 048
  74. NITROGLYCERIN [Suspect]
     Active Substance: NITROGLYCERIN
     Route: 048
  75. NITROGLYCERIN [Suspect]
     Active Substance: NITROGLYCERIN
     Route: 065
  76. NITROGLYCERIN [Suspect]
     Active Substance: NITROGLYCERIN
     Route: 048
  77. NITROGLYCERIN [Suspect]
     Active Substance: NITROGLYCERIN
     Route: 049
  78. NITROGLYCERIN [Suspect]
     Active Substance: NITROGLYCERIN
     Route: 048
  79. NITROGLYCERIN [Suspect]
     Active Substance: NITROGLYCERIN
     Route: 048
  80. FLOMAX [Suspect]
     Active Substance: TAMSULOSIN HYDROCHLORIDE
     Indication: Product used for unknown indication
     Dosage: CONTROLLED, EXTENDED RELEASE
     Route: 048
  81. FLOMAX [Suspect]
     Active Substance: TAMSULOSIN HYDROCHLORIDE
     Route: 048
  82. FLOMAX [Suspect]
     Active Substance: TAMSULOSIN HYDROCHLORIDE
     Route: 065
  83. FLOMAX [Suspect]
     Active Substance: TAMSULOSIN HYDROCHLORIDE
     Route: 048
  84. FLOMAX [Suspect]
     Active Substance: TAMSULOSIN HYDROCHLORIDE
     Route: 048
  85. ACETAMINOPHEN AND CODEINE [Suspect]
     Active Substance: ACETAMINOPHEN\CODEINE PHOSPHATE
     Indication: Product used for unknown indication
     Route: 065
  86. ACETAMINOPHEN AND CODEINE [Suspect]
     Active Substance: ACETAMINOPHEN\CODEINE PHOSPHATE
     Route: 065
  87. ACETAMINOPHEN AND CODEINE [Suspect]
     Active Substance: ACETAMINOPHEN\CODEINE PHOSPHATE
     Route: 048
  88. ACETAMINOPHEN AND CODEINE [Suspect]
     Active Substance: ACETAMINOPHEN\CODEINE PHOSPHATE
     Route: 048
  89. ACETAMINOPHEN AND CODEINE [Suspect]
     Active Substance: ACETAMINOPHEN\CODEINE PHOSPHATE
     Dosage: ELIXIR, ACETAMINOPHEN AND COD.PHOS.ELX,USP160 MG-8MG/5ML
     Route: 065
  90. TRAZODONE HYDROCHLORIDE [Suspect]
     Active Substance: TRAZODONE HYDROCHLORIDE
     Indication: Product used for unknown indication
     Route: 065
  91. TRAZODONE HYDROCHLORIDE [Suspect]
     Active Substance: TRAZODONE HYDROCHLORIDE
     Route: 065
  92. TRAZODONE HYDROCHLORIDE [Suspect]
     Active Substance: TRAZODONE HYDROCHLORIDE
     Route: 065
  93. TRAZODONE HYDROCHLORIDE [Suspect]
     Active Substance: TRAZODONE HYDROCHLORIDE
     Route: 048
  94. TRAZODONE HYDROCHLORIDE [Suspect]
     Active Substance: TRAZODONE HYDROCHLORIDE
     Route: 065
  95. TRAZODONE HYDROCHLORIDE [Suspect]
     Active Substance: TRAZODONE HYDROCHLORIDE
     Route: 065
  96. TRAZODONE [Suspect]
     Active Substance: TRAZODONE HYDROCHLORIDE
     Indication: Product used for unknown indication
     Route: 065
  97. TRAZODONE [Suspect]
     Active Substance: TRAZODONE HYDROCHLORIDE
     Route: 065
  98. TRAZODONE [Suspect]
     Active Substance: TRAZODONE HYDROCHLORIDE
     Route: 065
  99. TRAZODONE [Suspect]
     Active Substance: TRAZODONE HYDROCHLORIDE
     Route: 065
  100. DEXILANT [Suspect]
     Active Substance: DEXLANSOPRAZOLE
     Indication: Product used for unknown indication
     Dosage: CAPSULE, DELAYED RELEASE
     Route: 065
  101. DEXILANT [Suspect]
     Active Substance: DEXLANSOPRAZOLE
     Route: 065
  102. DEXILANT [Suspect]
     Active Substance: DEXLANSOPRAZOLE
     Dosage: CAPSULE, DELAYED RELEASE
     Route: 065
  103. DEXILANT [Suspect]
     Active Substance: DEXLANSOPRAZOLE
     Route: 048
  104. DEXILANT [Suspect]
     Active Substance: DEXLANSOPRAZOLE
     Route: 065
  105. DEXILANT [Suspect]
     Active Substance: DEXLANSOPRAZOLE
     Route: 065
  106. DEXILANT [Suspect]
     Active Substance: DEXLANSOPRAZOLE
     Route: 065
  107. HYDROCORTISONE [Suspect]
     Active Substance: HYDROCORTISONE
     Indication: Product used for unknown indication
     Dosage: NOT SPECIFIED
     Route: 065
  108. HYDROCORTISONE [Suspect]
     Active Substance: HYDROCORTISONE
     Dosage: NOT SPECIFIED
     Route: 061
  109. HYDROCORTISONE [Suspect]
     Active Substance: HYDROCORTISONE
     Route: 061
  110. HYDROCORTISONE [Suspect]
     Active Substance: HYDROCORTISONE
     Route: 065
  111. HYDROCORTISONE [Suspect]
     Active Substance: HYDROCORTISONE
     Route: 065
  112. ESCITALOPRAM [Suspect]
     Active Substance: ESCITALOPRAM OXALATE
     Indication: Prinzmetal angina
     Route: 065
  113. ESCITALOPRAM [Suspect]
     Active Substance: ESCITALOPRAM OXALATE
     Route: 065
  114. METOCLOPRAMIDE [Suspect]
     Active Substance: METOCLOPRAMIDE
     Indication: Migraine
     Route: 065
  115. METOCLOPRAMIDE [Suspect]
     Active Substance: METOCLOPRAMIDE
     Route: 048
  116. METOCLOPRAMIDE [Suspect]
     Active Substance: METOCLOPRAMIDE
     Route: 065
  117. METOCLOPRAMIDE [Suspect]
     Active Substance: METOCLOPRAMIDE
     Dosage: NOT SPECIFIED
     Route: 065
  118. METOCLOPRAMIDE [Suspect]
     Active Substance: METOCLOPRAMIDE
     Route: 065
  119. METOCLOPRAMIDE [Suspect]
     Active Substance: METOCLOPRAMIDE
     Route: 065
  120. METOCLOPRAMIDE [Suspect]
     Active Substance: METOCLOPRAMIDE
     Route: 065
  121. NITROGLYCERIN [Suspect]
     Active Substance: NITROGLYCERIN
     Indication: Prinzmetal angina
     Dosage: MYLAN-NITRO SUBLINGUAL SPRAY
     Route: 065
  122. NITROGLYCERIN [Suspect]
     Active Substance: NITROGLYCERIN
     Route: 048
  123. NITROGLYCERIN [Suspect]
     Active Substance: NITROGLYCERIN
     Route: 048
  124. NITROGLYCERIN [Suspect]
     Active Substance: NITROGLYCERIN
     Dosage: METERED-DOSE (AEROSOL)
     Route: 048
  125. NITRO-DUR [Suspect]
     Active Substance: NITROGLYCERIN
     Indication: Product used for unknown indication
     Dosage: EXTENDED RELEASE PATCH
     Route: 065
  126. ZOPICLONE [Suspect]
     Active Substance: ZOPICLONE
     Indication: Product used for unknown indication
     Route: 048
  127. ZOPICLONE [Suspect]
     Active Substance: ZOPICLONE
     Route: 048
  128. ZOPICLONE [Suspect]
     Active Substance: ZOPICLONE
     Route: 048
  129. ZOPICLONE [Suspect]
     Active Substance: ZOPICLONE
     Route: 065
  130. ROSUVASTATIN CALCIUM [Suspect]
     Active Substance: ROSUVASTATIN CALCIUM
     Indication: Product used for unknown indication
     Route: 065
  131. ROSUVASTATIN CALCIUM [Suspect]
     Active Substance: ROSUVASTATIN CALCIUM
     Route: 065
  132. ROSUVASTATIN CALCIUM [Suspect]
     Active Substance: ROSUVASTATIN CALCIUM
     Route: 048
  133. ROSUVASTATIN CALCIUM [Suspect]
     Active Substance: ROSUVASTATIN CALCIUM
     Route: 048
  134. ROSUVASTATIN CALCIUM [Suspect]
     Active Substance: ROSUVASTATIN CALCIUM
     Route: 065
  135. SYNTHROID [Suspect]
     Active Substance: LEVOTHYROXINE SODIUM
     Indication: Product used for unknown indication
     Dosage: NOT SPECIFIED
     Route: 065
  136. SYNTHROID [Suspect]
     Active Substance: LEVOTHYROXINE SODIUM
     Route: 065
  137. NASONEX [Suspect]
     Active Substance: MOMETASONE FUROATE
     Indication: Product used for unknown indication
     Dosage: INTRA-NASAL, SPRAY METERED DOSE
     Route: 065
  138. NASONEX [Suspect]
     Active Substance: MOMETASONE FUROATE
     Route: 065
  139. NASONEX [Suspect]
     Active Substance: MOMETASONE FUROATE
     Dosage: SPRAY, METERED DOSE
     Route: 045
  140. BISOPROLOL FUMARATE [Suspect]
     Active Substance: BISOPROLOL FUMARATE
     Indication: Product used for unknown indication
     Route: 048
  141. BISOPROLOL FUMARATE [Suspect]
     Active Substance: BISOPROLOL FUMARATE
     Route: 065
  142. ASPIRIN [Suspect]
     Active Substance: ASPIRIN
     Indication: Product used for unknown indication
     Route: 065
  143. ASPIRIN [Suspect]
     Active Substance: ASPIRIN
     Route: 065
  144. ASPIRIN [Suspect]
     Active Substance: ASPIRIN
     Dosage: NOT SPECIFIED
     Route: 065
  145. ASPIRIN [Suspect]
     Active Substance: ASPIRIN
     Route: 048
  146. ASPIRIN [Suspect]
     Active Substance: ASPIRIN
     Dosage: NOT SPECIFIED
     Route: 065
  147. ASPIRIN [Suspect]
     Active Substance: ASPIRIN
     Dosage: NOT SPECIFIED
     Route: 065
  148. ASPIRIN [Suspect]
     Active Substance: ASPIRIN
     Route: 048
  149. ASPIRIN [Suspect]
     Active Substance: ASPIRIN
     Route: 065
  150. LEVOTHYROXINE SODIUM [Suspect]
     Active Substance: LEVOTHYROXINE SODIUM
     Indication: Product used for unknown indication
     Route: 065
  151. LEVOTHYROXINE SODIUM [Suspect]
     Active Substance: LEVOTHYROXINE SODIUM
     Dosage: NOT SPECIFIED
     Route: 065
  152. LEVOTHYROXINE SODIUM [Suspect]
     Active Substance: LEVOTHYROXINE SODIUM
     Dosage: NOT SPECIFIED
     Route: 065
  153. LEVOTHYROXINE SODIUM [Suspect]
     Active Substance: LEVOTHYROXINE SODIUM
     Route: 065
  154. LEVOTHYROXINE SODIUM [Suspect]
     Active Substance: LEVOTHYROXINE SODIUM
     Route: 065
  155. MOMETASONE FUROATE [Suspect]
     Active Substance: MOMETASONE FUROATE
     Indication: Product used for unknown indication
     Dosage: NOT SPECIFIED
     Route: 065
  156. MOMETASONE FUROATE [Suspect]
     Active Substance: MOMETASONE FUROATE
     Dosage: NOT SPECIFIED
     Route: 055
  157. MOMETASONE FUROATE [Suspect]
     Active Substance: MOMETASONE FUROATE
     Dosage: INTRA-NASAL, NASAL SPRAY, SUSPENSION.
     Route: 055
  158. MOMETASONE FUROATE [Suspect]
     Active Substance: MOMETASONE FUROATE
     Dosage: INTRA-NASAL, NASAL SPRAY, SUSPENSION.
     Route: 055
  159. MOMETASONE FUROATE [Suspect]
     Active Substance: MOMETASONE FUROATE
     Dosage: INTRA-NASAL
     Route: 055
  160. MOMETASONE FUROATE [Suspect]
     Active Substance: MOMETASONE FUROATE
     Dosage: INTRA-NASAL, NASAL SPRAY, SUSPENSION.
     Route: 050
  161. MOMETASONE FUROATE [Suspect]
     Active Substance: MOMETASONE FUROATE
     Route: 065
  162. MOMETASONE FUROATE [Suspect]
     Active Substance: MOMETASONE FUROATE
     Route: 055
  163. ROSUVASTATIN [Suspect]
     Active Substance: ROSUVASTATIN
     Indication: Product used for unknown indication
     Dosage: NOT SPECIFIED
     Route: 048
  164. ROSUVASTATIN [Suspect]
     Active Substance: ROSUVASTATIN
     Dosage: NOT SPECIFIED
     Route: 065
  165. ROSUVASTATIN [Suspect]
     Active Substance: ROSUVASTATIN
     Route: 065
  166. ROSUVASTATIN [Suspect]
     Active Substance: ROSUVASTATIN
     Route: 061
  167. ROSUVASTATIN [Suspect]
     Active Substance: ROSUVASTATIN
     Route: 048
  168. ROSUVASTATIN [Suspect]
     Active Substance: ROSUVASTATIN
     Route: 065
  169. ROSUVASTATIN [Suspect]
     Active Substance: ROSUVASTATIN
     Route: 065
  170. ROSUVASTATIN [Suspect]
     Active Substance: ROSUVASTATIN
     Route: 065
  171. ROSUVASTATIN [Suspect]
     Active Substance: ROSUVASTATIN
     Route: 065
  172. ROSUVASTATIN [Suspect]
     Active Substance: ROSUVASTATIN
     Route: 065
  173. ROSUVASTATIN [Suspect]
     Active Substance: ROSUVASTATIN
     Route: 065
  174. ROSUVASTATIN [Suspect]
     Active Substance: ROSUVASTATIN
     Route: 065
  175. ROSUVASTATIN [Suspect]
     Active Substance: ROSUVASTATIN
     Route: 065
  176. ZOPICLONE [Suspect]
     Active Substance: ZOPICLONE
     Indication: Product used for unknown indication
     Route: 065
  177. ZOPICLONE [Suspect]
     Active Substance: ZOPICLONE
     Route: 065
  178. ZOPICLONE [Suspect]
     Active Substance: ZOPICLONE
     Route: 065
  179. ZOPICLONE [Suspect]
     Active Substance: ZOPICLONE
     Route: 048
  180. ZOPICLONE [Suspect]
     Active Substance: ZOPICLONE
     Route: 065
  181. TAMSULOSIN [Suspect]
     Active Substance: TAMSULOSIN
     Indication: Product used for unknown indication
     Dosage: NOT SPECIFIED
     Route: 065
  182. TAMSULOSIN [Suspect]
     Active Substance: TAMSULOSIN
     Dosage: TABLET (EXTENDED RELEASE)
     Route: 048
  183. ESCITALOPRAM OXALATE [Suspect]
     Active Substance: ESCITALOPRAM OXALATE
     Indication: Product used for unknown indication
     Route: 065
  184. ESCITALOPRAM OXALATE [Suspect]
     Active Substance: ESCITALOPRAM OXALATE
     Route: 065
  185. ESCITALOPRAM OXALATE [Suspect]
     Active Substance: ESCITALOPRAM OXALATE
     Route: 065
  186. ESCITALOPRAM OXALATE [Suspect]
     Active Substance: ESCITALOPRAM OXALATE
     Route: 065
  187. ESCITALOPRAM OXALATE [Suspect]
     Active Substance: ESCITALOPRAM OXALATE
     Route: 065
  188. ESCITALOPRAM OXALATE [Suspect]
     Active Substance: ESCITALOPRAM OXALATE
     Route: 065
  189. CLONAZEPAM [Suspect]
     Active Substance: CLONAZEPAM
     Indication: Product used for unknown indication
     Route: 048
  190. CLONAZEPAM [Suspect]
     Active Substance: CLONAZEPAM
     Route: 048
  191. CLONAZEPAM [Suspect]
     Active Substance: CLONAZEPAM
     Route: 048
  192. CLONAZEPAM [Suspect]
     Active Substance: CLONAZEPAM
     Route: 065
  193. CLONAZEPAM [Suspect]
     Active Substance: CLONAZEPAM
     Route: 065
  194. CLONAZEPAM [Suspect]
     Active Substance: CLONAZEPAM
     Route: 048
  195. CLONAZEPAM [Suspect]
     Active Substance: CLONAZEPAM
     Route: 065
  196. TAMSULOSIN HYDROCHLORIDE [Suspect]
     Active Substance: TAMSULOSIN HYDROCHLORIDE
     Indication: Product used for unknown indication
     Route: 065
  197. TAMSULOSIN HYDROCHLORIDE [Suspect]
     Active Substance: TAMSULOSIN HYDROCHLORIDE
     Route: 048
  198. TAMSULOSIN HYDROCHLORIDE [Suspect]
     Active Substance: TAMSULOSIN HYDROCHLORIDE
     Route: 065
  199. TAMSULOSIN HYDROCHLORIDE [Suspect]
     Active Substance: TAMSULOSIN HYDROCHLORIDE
     Route: 065
  200. NITROGLYCERIN [Suspect]
     Active Substance: NITROGLYCERIN
     Indication: Prinzmetal angina
     Route: 048
  201. NITROGLYCERIN [Suspect]
     Active Substance: NITROGLYCERIN
     Route: 048
  202. NITROGLYCERIN [Suspect]
     Active Substance: NITROGLYCERIN
     Route: 048
  203. NITRO-DUR [Suspect]
     Active Substance: NITROGLYCERIN
     Indication: Product used for unknown indication
     Dosage: PATCH, EXTENDED RELEASE
     Route: 065
  204. NITRO-DUR [Suspect]
     Active Substance: NITROGLYCERIN
     Dosage: PATCH, EXTENDED RELEASE
     Route: 065
  205. NITRO-DUR [Suspect]
     Active Substance: NITROGLYCERIN
     Route: 048
  206. NITRO-DUR [Suspect]
     Active Substance: NITROGLYCERIN
     Route: 065
  207. NITRO-DUR [Suspect]
     Active Substance: NITROGLYCERIN
     Route: 048
  208. NITRO-DUR [Suspect]
     Active Substance: NITROGLYCERIN
     Route: 048
  209. NITRO-DUR [Suspect]
     Active Substance: NITROGLYCERIN
     Route: 048
  210. TICAGRELOR [Suspect]
     Active Substance: TICAGRELOR
     Indication: Product used for unknown indication
     Route: 065
  211. TICAGRELOR [Suspect]
     Active Substance: TICAGRELOR
     Route: 065
  212. TICAGRELOR [Suspect]
     Active Substance: TICAGRELOR
     Route: 065
  213. TICAGRELOR [Suspect]
     Active Substance: TICAGRELOR
     Route: 048
  214. TICAGRELOR [Suspect]
     Active Substance: TICAGRELOR
     Route: 048
  215. ALPRAZOLAM [Suspect]
     Active Substance: ALPRAZOLAM
     Indication: Product used for unknown indication
     Route: 065
  216. ACETAMINOPHEN [Suspect]
     Active Substance: ACETAMINOPHEN
     Indication: Product used for unknown indication
     Dosage: NOT SPECIFIED
     Route: 065
  217. AMLODIPINE [Suspect]
     Active Substance: AMLODIPINE BESYLATE
     Indication: Product used for unknown indication
     Route: 065
  218. AMLODIPINE [Suspect]
     Active Substance: AMLODIPINE BESYLATE
     Route: 065
  219. LEVOTHYROXINE [Suspect]
     Active Substance: LEVOTHYROXINE
     Indication: Product used for unknown indication
     Dosage: NOT SPECIFIED
     Route: 065
  220. TESTOSTERONE [Suspect]
     Active Substance: TESTOSTERONE
     Indication: Product used for unknown indication
     Dosage: NOT SPECIFIED
     Route: 065
  221. TESTOSTERONE [Suspect]
     Active Substance: TESTOSTERONE
     Route: 065
  222. TESTOSTERONE [Suspect]
     Active Substance: TESTOSTERONE
     Route: 065
  223. TESTOSTERONE [Suspect]
     Active Substance: TESTOSTERONE
     Route: 030
  224. TESTOSTERONE [Suspect]
     Active Substance: TESTOSTERONE
     Route: 065
  225. AMLODIPINE BESYLATE [Suspect]
     Active Substance: AMLODIPINE BESYLATE
     Indication: Product used for unknown indication
     Route: 065
  226. AMLODIPINE BESYLATE [Suspect]
     Active Substance: AMLODIPINE BESYLATE
     Route: 065
  227. AMLODIPINE BESYLATE [Suspect]
     Active Substance: AMLODIPINE BESYLATE
     Route: 065
  228. AMLODIPINE BESYLATE [Suspect]
     Active Substance: AMLODIPINE BESYLATE
     Route: 065
  229. AMLODIPINE BESYLATE [Suspect]
     Active Substance: AMLODIPINE BESYLATE
     Route: 065
  230. AMLODIPINE BESYLATE [Suspect]
     Active Substance: AMLODIPINE BESYLATE
     Route: 065
  231. AMLODIPINE BESYLATE [Suspect]
     Active Substance: AMLODIPINE BESYLATE
     Route: 065
  232. BRILINTA [Suspect]
     Active Substance: TICAGRELOR
     Indication: Product used for unknown indication
     Route: 065
  233. BRILINTA [Suspect]
     Active Substance: TICAGRELOR
     Route: 048
  234. BRILINTA [Suspect]
     Active Substance: TICAGRELOR
     Route: 065
  235. BRILINTA [Suspect]
     Active Substance: TICAGRELOR
     Route: 065
  236. BRILINTA [Suspect]
     Active Substance: TICAGRELOR
     Route: 048
  237. BRILINTA [Suspect]
     Active Substance: TICAGRELOR
     Route: 065
  238. BRILINTA [Suspect]
     Active Substance: TICAGRELOR
     Route: 065
  239. BRILINTA [Suspect]
     Active Substance: TICAGRELOR
     Route: 048
  240. BRILINTA [Suspect]
     Active Substance: TICAGRELOR
     Route: 048
  241. BRILINTA [Suspect]
     Active Substance: TICAGRELOR
     Route: 065
  242. BRILINTA [Suspect]
     Active Substance: TICAGRELOR
     Route: 065
  243. BRILINTA [Suspect]
     Active Substance: TICAGRELOR
     Route: 048
  244. BRILINTA [Suspect]
     Active Substance: TICAGRELOR
     Route: 065
  245. BISOPROLOL [Suspect]
     Active Substance: BISOPROLOL
     Indication: Product used for unknown indication
     Route: 065
  246. BISOPROLOL [Suspect]
     Active Substance: BISOPROLOL
     Route: 048
  247. BISOPROLOL [Suspect]
     Active Substance: BISOPROLOL
     Route: 065
  248. BISOPROLOL [Suspect]
     Active Substance: BISOPROLOL
     Route: 065
  249. TRAZODONE HYDROCHLORIDE [Suspect]
     Active Substance: TRAZODONE HYDROCHLORIDE
     Indication: Product used for unknown indication
     Route: 065
  250. TRAZODONE HYDROCHLORIDE [Suspect]
     Active Substance: TRAZODONE HYDROCHLORIDE
     Route: 048
  251. TRAZODONE HYDROCHLORIDE [Suspect]
     Active Substance: TRAZODONE HYDROCHLORIDE
     Route: 065
  252. BISOPROLOL FUMARATE [Suspect]
     Active Substance: BISOPROLOL FUMARATE
     Indication: Product used for unknown indication
     Route: 065
  253. ASPIRIN [Suspect]
     Active Substance: ASPIRIN
     Indication: Prinzmetal angina
     Route: 048
  254. ASPIRIN [Suspect]
     Active Substance: ASPIRIN
     Route: 065
  255. ASPIRIN [Suspect]
     Active Substance: ASPIRIN
     Route: 048
  256. ASPIRIN [Suspect]
     Active Substance: ASPIRIN
     Route: 065
  257. ASPIRIN [Suspect]
     Active Substance: ASPIRIN
     Route: 065
  258. ASPIRIN [Suspect]
     Active Substance: ASPIRIN
     Route: 048
  259. MORNIFLUMATE [Suspect]
     Active Substance: MORNIFLUMATE
     Indication: Product used for unknown indication
     Route: 065
  260. CICLOPIROX OLAMINE [Suspect]
     Active Substance: CICLOPIROX OLAMINE
     Indication: Product used for unknown indication
     Route: 065
  261. CICLOPIROX OLAMINE [Suspect]
     Active Substance: CICLOPIROX OLAMINE
     Route: 048
  262. CICLOPIROX OLAMINE [Suspect]
     Active Substance: CICLOPIROX OLAMINE
     Route: 048
  263. CICLOPIROX OLAMINE [Suspect]
     Active Substance: CICLOPIROX OLAMINE
     Route: 048
  264. RIVOTRIL [Suspect]
     Active Substance: CLONAZEPAM
     Indication: Product used for unknown indication
     Route: 048
  265. RIVOTRIL [Suspect]
     Active Substance: CLONAZEPAM
     Route: 048
  266. RIVOTRIL [Suspect]
     Active Substance: CLONAZEPAM
     Route: 048
  267. RIVOTRIL [Suspect]
     Active Substance: CLONAZEPAM
     Route: 048
  268. RIVOTRIL [Suspect]
     Active Substance: CLONAZEPAM
     Route: 065
  269. NITROGLYCERIN [Suspect]
     Active Substance: NITROGLYCERIN
     Indication: Prinzmetal angina
     Route: 048
  270. NITROGLYCERIN [Suspect]
     Active Substance: NITROGLYCERIN
     Route: 048
  271. NITROGLYCERIN [Suspect]
     Active Substance: NITROGLYCERIN
     Dosage: METERED-DOSE (AEROSOL)
     Route: 048
  272. ACETAMINOPHEN\CODEINE PHOSPHATE [Suspect]
     Active Substance: ACETAMINOPHEN\CODEINE PHOSPHATE
     Indication: Product used for unknown indication
     Dosage: ELIXIR
     Route: 065
  273. DEXLANSOPRAZOLE [Suspect]
     Active Substance: DEXLANSOPRAZOLE
     Indication: Product used for unknown indication
     Dosage: CAPSULE, DELAYED RELEASE
     Route: 065
  274. RAMIPRIL [Suspect]
     Active Substance: RAMIPRIL
     Indication: Product used for unknown indication
     Route: 065
  275. AMLODIPINE BESYLATE [Suspect]
     Active Substance: AMLODIPINE BESYLATE
     Indication: Product used for unknown indication
     Route: 065
  276. ACETAMINOPHEN AND CODEINE [Suspect]
     Active Substance: ACETAMINOPHEN\CODEINE PHOSPHATE
     Indication: Product used for unknown indication
     Route: 048
  277. ACETAMINOPHEN AND CODEINE [Suspect]
     Active Substance: ACETAMINOPHEN\CODEINE PHOSPHATE
     Route: 065
  278. ACETAMINOPHEN AND CODEINE [Suspect]
     Active Substance: ACETAMINOPHEN\CODEINE PHOSPHATE
     Route: 048
  279. ACETAMINOPHEN AND CODEINE [Suspect]
     Active Substance: ACETAMINOPHEN\CODEINE PHOSPHATE
     Route: 065
  280. NASONEX [Suspect]
     Active Substance: MOMETASONE FUROATE
     Indication: Product used for unknown indication
     Dosage: INTRA-NASAL, SPRAY METERED DOSE
     Route: 065
  281. NASONEX [Suspect]
     Active Substance: MOMETASONE FUROATE
     Route: 055
  282. NASONEX [Suspect]
     Active Substance: MOMETASONE FUROATE
     Dosage: INTRA-NASAL
     Route: 065
  283. NASONEX [Suspect]
     Active Substance: MOMETASONE FUROATE
     Route: 065
  284. NASONEX [Suspect]
     Active Substance: MOMETASONE FUROATE
     Route: 065
  285. SYNTHROID [Suspect]
     Active Substance: LEVOTHYROXINE SODIUM
     Indication: Product used for unknown indication
     Route: 065
  286. CODEINE [Suspect]
     Active Substance: CODEINE
     Indication: Product used for unknown indication
     Route: 065
  287. HYDROMORPHONE [Suspect]
     Active Substance: HYDROMORPHONE
     Indication: Product used for unknown indication
     Route: 065
  288. METOCLOPRAMIDE HYDROCHLORIDE [Suspect]
     Active Substance: METOCLOPRAMIDE HYDROCHLORIDE
     Indication: Migraine
     Route: 065
  289. METOCLOPRAMIDE HYDROCHLORIDE [Suspect]
     Active Substance: METOCLOPRAMIDE HYDROCHLORIDE
     Route: 065
  290. METOCLOPRAMIDE HYDROCHLORIDE [Suspect]
     Active Substance: METOCLOPRAMIDE HYDROCHLORIDE
     Route: 065
  291. METOCLOPRAMIDE HYDROCHLORIDE [Suspect]
     Active Substance: METOCLOPRAMIDE HYDROCHLORIDE
     Route: 065
  292. METOCLOPRAMIDE HYDROCHLORIDE [Suspect]
     Active Substance: METOCLOPRAMIDE HYDROCHLORIDE
     Route: 065
  293. METOCLOPRAMIDE HYDROCHLORIDE [Suspect]
     Active Substance: METOCLOPRAMIDE HYDROCHLORIDE
     Route: 065
  294. METOCLOPRAMIDE HYDROCHLORIDE [Suspect]
     Active Substance: METOCLOPRAMIDE HYDROCHLORIDE
     Route: 048
  295. METOCLOPRAMIDE HYDROCHLORIDE [Suspect]
     Active Substance: METOCLOPRAMIDE HYDROCHLORIDE
     Route: 065
  296. METOCLOPRAMIDE HYDROCHLORIDE [Suspect]
     Active Substance: METOCLOPRAMIDE HYDROCHLORIDE
     Route: 065
  297. METOCLOPRAMIDE HYDROCHLORIDE [Suspect]
     Active Substance: METOCLOPRAMIDE HYDROCHLORIDE
     Route: 048
  298. METOCLOPRAMIDE HYDROCHLORIDE [Suspect]
     Active Substance: METOCLOPRAMIDE HYDROCHLORIDE
     Route: 065
  299. METOCLOPRAMIDE HYDROCHLORIDE [Suspect]
     Active Substance: METOCLOPRAMIDE HYDROCHLORIDE
     Route: 048
  300. BISOPROLOL FUMARATE [Concomitant]
     Active Substance: BISOPROLOL FUMARATE
     Indication: Product used for unknown indication
     Route: 048
  301. BISOPROLOL FUMARATE [Concomitant]
     Active Substance: BISOPROLOL FUMARATE
     Route: 065
  302. BISOPROLOL FUMARATE [Concomitant]
     Active Substance: BISOPROLOL FUMARATE
     Route: 065
  303. NITROGLYCERIN [Concomitant]
     Active Substance: NITROGLYCERIN
     Indication: Prinzmetal angina
     Route: 048
  304. ESCITALOPRAM OXALATE [Concomitant]
     Active Substance: ESCITALOPRAM OXALATE
     Indication: Product used for unknown indication
  305. RIVOTRIL [Concomitant]
     Active Substance: CLONAZEPAM
     Indication: Product used for unknown indication
  306. RIVOTRIL [Concomitant]
     Active Substance: CLONAZEPAM
  307. RIVOTRIL [Concomitant]
     Active Substance: CLONAZEPAM
     Route: 065
  308. RIVOTRIL [Concomitant]
     Active Substance: CLONAZEPAM
     Route: 065
  309. RIVOTRIL [Concomitant]
     Active Substance: CLONAZEPAM
     Route: 065
  310. RIVOTRIL [Concomitant]
     Active Substance: CLONAZEPAM
     Route: 048
  311. RIVOTRIL [Concomitant]
     Active Substance: CLONAZEPAM
     Route: 048
  312. RIVOTRIL [Concomitant]
     Active Substance: CLONAZEPAM
     Route: 048
  313. ASPIRIN [Concomitant]
     Active Substance: ASPIRIN
     Indication: Prinzmetal angina
     Route: 048
  314. ASPIRIN [Concomitant]
     Active Substance: ASPIRIN
     Route: 065
  315. ASPIRIN [Concomitant]
     Active Substance: ASPIRIN
     Route: 065
  316. ASPIRIN [Concomitant]
     Active Substance: ASPIRIN
     Route: 065
  317. ASPIRIN [Concomitant]
     Active Substance: ASPIRIN
     Route: 065
  318. HYDROMORPHONE [Concomitant]
     Active Substance: HYDROMORPHONE
     Indication: Product used for unknown indication
  319. PREDNISONE [Concomitant]
     Active Substance: PREDNISONE
     Indication: Product used for unknown indication
     Dosage: NOT SPECIFIED
  320. AMLODIPINE [Concomitant]
     Active Substance: AMLODIPINE BESYLATE
     Indication: Product used for unknown indication
     Route: 065
  321. HYDROCORTISONE [Concomitant]
     Active Substance: HYDROCORTISONE
     Indication: Product used for unknown indication
  322. METOCLOPRAMIDE [Concomitant]
     Active Substance: METOCLOPRAMIDE
     Indication: Migraine
  323. NITROGLYCERIN [Concomitant]
     Active Substance: NITROGLYCERIN
     Indication: Prinzmetal angina
     Route: 048
  324. NITROGLYCERIN [Concomitant]
     Active Substance: NITROGLYCERIN
     Route: 048
  325. NITROGLYCERIN [Concomitant]
     Active Substance: NITROGLYCERIN
     Route: 065
  326. NITROGLYCERIN [Concomitant]
     Active Substance: NITROGLYCERIN
     Route: 048
  327. NITROGLYCERIN [Concomitant]
     Active Substance: NITROGLYCERIN
     Route: 065
  328. ZOPICLONE [Concomitant]
     Active Substance: ZOPICLONE
     Indication: Product used for unknown indication
  329. BENZOYL PEROXIDE [Concomitant]
     Active Substance: BENZOYL PEROXIDE
     Indication: Product used for unknown indication
     Route: 061
  330. BENZOYL PEROXIDE [Concomitant]
     Active Substance: BENZOYL PEROXIDE
     Route: 061
  331. BISOPROLOL [Concomitant]
     Active Substance: BISOPROLOL
     Indication: Product used for unknown indication
     Route: 065
  332. BISOPROLOL [Concomitant]
     Active Substance: BISOPROLOL
     Route: 048
  333. BISOPROLOL [Concomitant]
     Active Substance: BISOPROLOL
     Route: 065
  334. DEXILANT [Concomitant]
     Active Substance: DEXLANSOPRAZOLE
     Indication: Product used for unknown indication
  335. DEXILANT [Concomitant]
     Active Substance: DEXLANSOPRAZOLE
     Dosage: CAPSULE, DELAYED RELEASE
     Route: 048
  336. DEXILANT [Concomitant]
     Active Substance: DEXLANSOPRAZOLE
     Route: 048
  337. DEXILANT [Concomitant]
     Active Substance: DEXLANSOPRAZOLE
  338. DILTIAZEM [Concomitant]
     Active Substance: DILTIAZEM
     Indication: Product used for unknown indication
  339. ESCITALOPRAM [Concomitant]
     Active Substance: ESCITALOPRAM OXALATE
     Indication: Product used for unknown indication
  340. ESCITALOPRAM OXALATE [Concomitant]
     Active Substance: ESCITALOPRAM OXALATE
     Indication: Product used for unknown indication
  341. MORNIFLUMATE [Concomitant]
     Active Substance: MORNIFLUMATE
     Indication: Product used for unknown indication
  342. MORNIFLUMATE [Concomitant]
     Active Substance: MORNIFLUMATE
     Route: 065
  343. RAMIPRIL [Concomitant]
     Active Substance: RAMIPRIL
     Indication: Product used for unknown indication
     Route: 048
  344. RAMIPRIL [Concomitant]
     Active Substance: RAMIPRIL
  345. RAMIPRIL [Concomitant]
     Active Substance: RAMIPRIL
  346. RAMIPRIL [Concomitant]
     Active Substance: RAMIPRIL
  347. RAMIPRIL [Concomitant]
     Active Substance: RAMIPRIL
     Route: 048
  348. RAMIPRIL [Concomitant]
     Active Substance: RAMIPRIL
     Route: 065
  349. RAMIPRIL [Concomitant]
     Active Substance: RAMIPRIL
     Route: 065
  350. TRAZODONE [Concomitant]
     Active Substance: TRAZODONE HYDROCHLORIDE
     Indication: Product used for unknown indication
     Route: 048
  351. CICLOPIROX [CICLOPIROX OLAMINE] [Concomitant]
     Indication: Product used for unknown indication
     Route: 065
  352. ACETAMINOPHEN\CODEINE PHOSPHATE [Concomitant]
     Active Substance: ACETAMINOPHEN\CODEINE PHOSPHATE
     Indication: Product used for unknown indication
     Dosage: ACETAMINOPHEN;CODEINE PHOSPHATE, 1 IN 6 HOURS
     Route: 065
  353. ACETAMINOPHEN\CODEINE PHOSPHATE [Concomitant]
     Active Substance: ACETAMINOPHEN\CODEINE PHOSPHATE
     Route: 048
  354. ACETAMINOPHEN\CODEINE PHOSPHATE [Concomitant]
     Active Substance: ACETAMINOPHEN\CODEINE PHOSPHATE
     Dosage: 1 EVERY 1 DAYS
     Route: 048
  355. NITROGLYCERIN [Concomitant]
     Active Substance: NITROGLYCERIN
     Indication: Prinzmetal angina
     Route: 048
  356. NITROGLYCERIN [Concomitant]
     Active Substance: NITROGLYCERIN
     Route: 048
  357. NITROGLYCERIN [Concomitant]
     Active Substance: NITROGLYCERIN
     Route: 048

REACTIONS (3)
  - Device dislocation [Recovered/Resolved]
  - Device malfunction [Recovered/Resolved]
  - Drug ineffective [Recovered/Resolved]
